FAERS Safety Report 5673192-4 (Version None)
Quarter: 2008Q1

REPORT INFORMATION
  Report Type: 
  Country: None (occurrence: None)
  Receive Date: 20080319
  Receipt Date: 20080317
  Transmission Date: 20080703
  Serious: Yes (Other)
  Sender: FDA-Public Use
  Company Number: FR-BRISTOL-MYERS SQUIBB COMPANY-14118889

PATIENT
  Age: 41 Year
  Sex: Female

DRUGS (5)
  1. AMIKLIN INJ 250 MG [Suspect]
     Dosage: 300MG/DFROM 22-JAN-08 TO 29-JAN-08;500MG/D FROM 29-JAN-08 TO 01-FEB-08;DECREASED TO 300MG03-FEB-08.
     Route: 042
     Dates: start: 20080129, end: 20080201
  2. ANSATIPINE [Suspect]
     Dosage: 150MG FROM 23-JAN-08 TO 31-JAN-08;12-FEB-08 DAILY DOSE 2/D, DOSE DECREASED TO 1/D ON 13-FEB-2008.
     Dates: start: 20080123, end: 20080131
  3. RIMIFON [Suspect]
     Dosage: RESTARTED ON 03-FEB-2008, STOPPED ON 04-FEB-2008, RESTARTED AGAIN ON 09-FEB-2008.
     Dates: start: 20080123, end: 20080131
  4. MYAMBUTOL [Suspect]
     Dosage: RE-STARTED AT THE SAME DOSE ON O3-FEB-2008
     Dates: start: 20080123, end: 20080201
  5. ZECLAR [Suspect]
     Dosage: 500 MG FROM 23-JAN-2008 TO 01-FEB-2008; RE-STARTED AT THE SAME DOSE ON 03-FEB-2008
     Dates: start: 20080123, end: 20080201

REACTIONS (1)
  - NEUTROPENIA [None]
